FAERS Safety Report 12066846 (Version 1)
Quarter: 2016Q1

REPORT INFORMATION
  Report Type: Spontaneous
  Country: US (occurrence: None)
  Receive Date: 20160210
  Receipt Date: 20160210
  Transmission Date: 20160526
  Serious: Yes (Other)
  Sender: FDA-Public Use
  Company Number: None

PATIENT
  Age: 55 Year
  Sex: Male
  Weight: 90.72 kg

DRUGS (5)
  1. BACTRIM UNKNOWN GENERIC [Suspect]
     Active Substance: SULFAMETHOXAZOLE\TRIMETHOPRIM
     Indication: CYSTITIS
     Dosage: 1 PILL TWICE DAILY TAKEN BY MOUTH
     Route: 048
  2. BACTRIM UNKNOWN GENERIC [Suspect]
     Active Substance: SULFAMETHOXAZOLE\TRIMETHOPRIM
     Indication: BRONCHITIS
     Dosage: 1 PILL TWICE DAILY TAKEN BY MOUTH
     Route: 048
  3. BACTRIM UNKNOWN GENERIC [Suspect]
     Active Substance: SULFAMETHOXAZOLE\TRIMETHOPRIM
     Indication: SINUSITIS
     Dosage: 1 PILL TWICE DAILY TAKEN BY MOUTH
     Route: 048
  4. DIAZEPAM. [Concomitant]
     Active Substance: DIAZEPAM
  5. LOR SOMETHING [Concomitant]

REACTIONS (2)
  - Genital rash [None]
  - Genital blister [None]

NARRATIVE: CASE EVENT DATE: 20160208
